FAERS Safety Report 8080686-3 (Version None)
Quarter: 2012Q1

REPORT INFORMATION
  Report Type: 
  Country: None (occurrence: None)
  Receive Date: 20120130
  Receipt Date: 20120123
  Transmission Date: 20120608
  Serious: Yes (Hospitalization)
  Sender: FDA-Public Use
  Company Number: PHHY2012JP006829

PATIENT
  Age: 90 Year
  Sex: Female

DRUGS (2)
  1. FAMVIR [Suspect]
     Indication: HERPES ZOSTER
     Dosage: 750 MG, QD
     Route: 048
     Dates: start: 20120112
  2. FAMVIR [Suspect]
     Dosage: 500 MG, QD
     Route: 048
     Dates: end: 20120117

REACTIONS (1)
  - RHABDOMYOLYSIS [None]
